FAERS Safety Report 5908017-2 (Version None)
Quarter: 2008Q4

REPORT INFORMATION
  Report Type: 
  Country: None (occurrence: None)
  Receive Date: 20081003
  Receipt Date: 20080929
  Transmission Date: 20090506
  Serious: No
  Sender: FDA-Public Use
  Company Number: US-B.I. PHARMACEUTICALS,INC./RIDGEFIELD-2008-BP-15118BP

PATIENT
  Age: 73 Year
  Sex: Female

DRUGS (2)
  1. AGGRENOX [Suspect]
     Indication: TRANSIENT ISCHAEMIC ATTACK
     Route: 048
     Dates: start: 20080915, end: 20080925
  2. CELEBREX [Concomitant]

REACTIONS (9)
  - DIZZINESS [None]
  - EAR DISORDER [None]
  - EAR PAIN [None]
  - EYE PAIN [None]
  - FATIGUE [None]
  - FEELING HOT [None]
  - HEADACHE [None]
  - PAIN [None]
  - PALPITATIONS [None]
